FAERS Safety Report 9289273 (Version 1)
Quarter: 2013Q2

REPORT INFORMATION
  Report Type: Spontaneous
  Country: US (occurrence: US)
  Receive Date: 20130514
  Receipt Date: 20130514
  Transmission Date: 20140414
  Serious: No
  Sender: FDA-Public Use
  Company Number: US-ASTRAZENECA-2013SE30356

PATIENT
  Sex: Female
  Weight: 72.6 kg

DRUGS (11)
  1. CRESTOR [Suspect]
     Route: 048
  2. NIASPAN [Suspect]
     Indication: BLOOD CHOLESTEROL INCREASED
     Route: 048
  3. NIASPAN [Suspect]
     Indication: BLOOD CHOLESTEROL INCREASED
     Route: 048
  4. ASPIRIN [Concomitant]
  5. PRAVASTATIN [Concomitant]
  6. COQ 10 [Concomitant]
  7. CALCIUM GLUCONATE [Concomitant]
  8. VIT D [Concomitant]
  9. VIT C [Concomitant]
  10. MAGNESIUM CARBONATE [Concomitant]
  11. BENICAR [Concomitant]

REACTIONS (3)
  - Flushing [Not Recovered/Not Resolved]
  - Skin burning sensation [Not Recovered/Not Resolved]
  - Myalgia [Not Recovered/Not Resolved]
